FAERS Safety Report 17655532 (Version 10)
Quarter: 2023Q1

REPORT INFORMATION
  Report Type: Report from Study
  Country: US (occurrence: US)
  Receive Date: 20200410
  Receipt Date: 20230117
  Transmission Date: 20230418
  Serious: Yes (Hospitalization)
  Sender: FDA-Public Use
  Company Number: US-PFIZER INC-2020148097

PATIENT
  Sex: Male

DRUGS (6)
  1. LYRICA [Suspect]
     Active Substance: PREGABALIN
     Indication: Pain
     Dosage: 300 MILLIGRAM, BID (300 MG, 2X/DAY)
     Route: 048
  2. LYRICA [Suspect]
     Active Substance: PREGABALIN
     Indication: Intervertebral disc displacement
     Dosage: 300 MILLIGRAM, TID (300 MG, THREE TIMES A DAY, TAKE 1 CAPSULE BY MOUTH EVERY 8 HOURS (Q8H))
     Route: 048
  3. LYRICA [Suspect]
     Active Substance: PREGABALIN
     Dosage: 75 MILLIGRAM, BID (75 MG, TWICE A DAY)
     Route: 048
  4. LYRICA [Suspect]
     Active Substance: PREGABALIN
     Dosage: 150 MILLIGRAM, BID (150 MG, TWICE A DAY)
     Route: 048
  5. LYRICA [Suspect]
     Active Substance: PREGABALIN
     Dosage: 225 MILLIGRAM, BID (225 MG, TWICE A DAY)
     Route: 048
  6. LYRICA [Suspect]
     Active Substance: PREGABALIN
     Dosage: 300 MILLIGRAM, TID (300 MG, THREE TIMES A DAY, TAKE 1 CAPSULE BY MOUTH EVERY 8 HOURS (Q8H))
     Route: 048

REACTIONS (4)
  - COVID-19 [Unknown]
  - Hypoaesthesia [Unknown]
  - Prescribed overdose [Unknown]
  - Off label use [Unknown]
